FAERS Safety Report 11139457 (Version 1)
Quarter: 2015Q2

REPORT INFORMATION
  Report Type: Spontaneous
  Country: US (occurrence: None)
  Receive Date: 20150526
  Receipt Date: 20150526
  Transmission Date: 20150821
  Serious: Yes (Life-Threatening)
  Sender: FDA-Public Use
  Company Number: None

PATIENT
  Age: 70 Year
  Sex: Male
  Weight: 109 kg

DRUGS (15)
  1. TACROLISMUS (PROGRAF-GENERIC EQUIVALENT) [Concomitant]
  2. ASPIRIN. [Concomitant]
     Active Substance: ASPIRIN
  3. COLCHICINE. [Concomitant]
     Active Substance: COLCHICINE
  4. RAPAMUNE [Concomitant]
     Active Substance: SIROLIMUS
  5. AMLODIPINE (NORVASC) [Concomitant]
  6. METOPROLOL (TOPROL-XL) [Concomitant]
  7. PREDNISONE (DELTASONE)? [Concomitant]
  8. AMOXICILLIN (AMOXIL) [Concomitant]
  9. SULFAMETHOXAZOLE-TRIMETHOPRIM (BACTRIM, SEPTRA) [Concomitant]
  10. CYANOCOBALAMIN (VITAMIN B 12) [Concomitant]
  11. PRAVACHOL [Concomitant]
     Active Substance: PRAVASTATIN SODIUM
  12. APIXABAN [Suspect]
     Active Substance: APIXABAN
     Route: 048
  13. ALLOPURINOL (ZYLOPRIM) [Concomitant]
  14. LASIX [Concomitant]
     Active Substance: FUROSEMIDE
  15. ZOFRAN [Concomitant]
     Active Substance: ONDANSETRON HYDROCHLORIDE

REACTIONS (1)
  - Cerebral haemorrhage [None]

NARRATIVE: CASE EVENT DATE: 20150524
